FAERS Safety Report 14376011 (Version 2)
Quarter: 2018Q1

REPORT INFORMATION
  Report Type: Other
  Country: NO (occurrence: NO)
  Receive Date: 20180111
  Receipt Date: 20180202
  Transmission Date: 20180509
  Serious: Yes (Other)
  Sender: FDA-Public Use
  Company Number: NO-CELLTRION INC.-2018NO017191

PATIENT

DRUGS (3)
  1. INFLIXIMAB (UNKNOWN) [Suspect]
     Active Substance: INFLIXIMAB
     Indication: PSORIASIS
     Dosage: 4.4 MG/KG,STARTED WITH 400 MG, 4 MG/KG
     Route: 065
     Dates: start: 201510, end: 201510
  2. LIPITOR [Concomitant]
     Active Substance: ATORVASTATIN CALCIUM
     Indication: HYPERCHOLESTEROLAEMIA
     Route: 065
  3. INFLIXIMAB (UNKNOWN) [Suspect]
     Active Substance: INFLIXIMAB
     Dosage: 4.4 MG/KG,STARTED WITH 400 MG, 4 MG/KG
     Route: 065
     Dates: start: 20160722, end: 20160722

REACTIONS (7)
  - Pulmonary sarcoidosis [Recovering/Resolving]
  - Vision blurred [Not Recovered/Not Resolved]
  - Dysphagia [Not Recovered/Not Resolved]
  - Dyspnoea [Recovering/Resolving]
  - Photophobia [Not Recovered/Not Resolved]
  - Chest discomfort [Recovering/Resolving]
  - Incorrect dose administered [Unknown]

NARRATIVE: CASE EVENT DATE: 2016
